FAERS Safety Report 8153941-6 (Version None)
Quarter: 2012Q1

REPORT INFORMATION
  Report Type: 
  Country: None (occurrence: None)
  Receive Date: 20120221
  Receipt Date: 20120221
  Transmission Date: 20120608
  Serious: Yes (Other)
  Sender: FDA-Public Use
  Company Number: None

PATIENT
  Age: 54 Year
  Sex: Female

DRUGS (21)
  1. CALCIUM [Concomitant]
  2. FAMOTIDINE [Concomitant]
     Route: 048
  3. DIPHENHYDRAMINE HCL [Concomitant]
     Route: 042
  4. OMEGA-3 FATTY ACIDS [Concomitant]
  5. DEXAMETHASONE [Concomitant]
     Route: 048
  6. PSEUDOEPHEDRINE HCL/CHLORPHENIRAMINE MALEATE [Concomitant]
  7. MULTIPLE VITAMIN [Concomitant]
  8. DOCETAXEL [Suspect]
     Indication: BREAST CANCER
     Dosage: 190 MG
     Route: 042
     Dates: start: 20110922, end: 20110922
  9. MELOXICAM [Concomitant]
  10. OMEPRAZOLE [Concomitant]
  11. MAGIC MOUTHWASH [Concomitant]
  12. ZOLPIDEM [Concomitant]
  13. NEULASTA [Concomitant]
     Route: 051
  14. POBIOTICS [Concomitant]
  15. VITAMIN D [Concomitant]
  16. LORAZEPAM [Concomitant]
  17. OXYCODONE HCL [Concomitant]
     Route: 048
  18. LIDOCAINE-PRILOCAINE CREAM [Concomitant]
     Route: 061
  19. CETIRIZINE [Concomitant]
  20. GLUCOSAMINE-CHONDROITIN [Concomitant]
  21. DOCUSATE [Concomitant]

REACTIONS (19)
  - RHINORRHOEA [None]
  - EYE DISCHARGE [None]
  - ASTHENIA [None]
  - PAIN IN JAW [None]
  - PYREXIA [None]
  - ONYCHALGIA [None]
  - COUGH [None]
  - POLLAKIURIA [None]
  - LACRIMATION INCREASED [None]
  - DRUG INTOLERANCE [None]
  - PAIN [None]
  - BACTERIAL TEST POSITIVE [None]
  - PALMAR-PLANTAR ERYTHRODYSAESTHESIA SYNDROME [None]
  - TOXICITY TO VARIOUS AGENTS [None]
  - HYPOAESTHESIA [None]
  - FATIGUE [None]
  - BACK PAIN [None]
  - DIZZINESS [None]
  - VISION BLURRED [None]
